FAERS Safety Report 15684829 (Version 1)
Quarter: 2018Q4

REPORT INFORMATION
  Report Type: Spontaneous
  Country: DE (occurrence: DE)
  Receive Date: 20181204
  Receipt Date: 20181204
  Transmission Date: 20190205
  Serious: Yes (Other)
  Sender: FDA-Public Use
  Company Number: DE-ACTELION-A-CH2018-180874

PATIENT
  Age: 5 Week
  Sex: Male

DRUGS (1)
  1. ZAVESCA [Suspect]
     Active Substance: MIGLUSTAT
     Indication: NIEMANN-PICK DISEASE
     Route: 048

REACTIONS (6)
  - Viral infection [Unknown]
  - Motor developmental delay [Unknown]
  - Dependence on oxygen therapy [Recovered/Resolved]
  - Intellectual disability [Unknown]
  - Diarrhoea [Recovering/Resolving]
  - Transaminases increased [Unknown]
